FAERS Safety Report 12364682 (Version 1)
Quarter: 2016Q2

REPORT INFORMATION
  Report Type: Spontaneous
  Country: US (occurrence: US)
  Receive Date: 20160512
  Receipt Date: 20160512
  Transmission Date: 20160815
  Serious: No
  Sender: FDA-Public Use
  Company Number: US-WARNER CHILCOTT, LLC-1052091

PATIENT
  Sex: Female

DRUGS (2)
  1. HORMONES [Concomitant]
     Active Substance: UNSPECIFIED INGREDIENT
  2. ACTONEL [Suspect]
     Active Substance: RISEDRONATE SODIUM
     Indication: PROPHYLAXIS
     Route: 048
     Dates: start: 2005

REACTIONS (3)
  - Alopecia [Not Recovered/Not Resolved]
  - Jaw disorder [Not Recovered/Not Resolved]
  - Trigeminal neuralgia [Not Recovered/Not Resolved]
